FAERS Safety Report 9263088 (Version 1)
Quarter: 2013Q2

REPORT INFORMATION
  Report Type: Spontaneous
  Country: US (occurrence: US)
  Receive Date: 20130430
  Receipt Date: 20130430
  Transmission Date: 20140414
  Serious: Yes (Death, Hospitalization)
  Sender: FDA-Public Use
  Company Number: US-ROCHE-1219089

PATIENT
  Sex: Male

DRUGS (3)
  1. PEGASYS [Suspect]
     Indication: HEPATITIS C
     Route: 058
     Dates: start: 20130312
  2. INCIVEK [Concomitant]
     Route: 065
  3. RIBAVIRIN [Concomitant]
     Route: 065

REACTIONS (2)
  - Death [Fatal]
  - Pneumonia [Unknown]
